FAERS Safety Report 8197926-2 (Version None)
Quarter: 2012Q1

REPORT INFORMATION
  Report Type: 
  Country: None (occurrence: None)
  Receive Date: 20120309
  Receipt Date: 20120303
  Transmission Date: 20120608
  Serious: Yes (Hospitalization)
  Sender: FDA-Public Use
  Company Number: US-ABBOTT-12P-163-0911015-00

PATIENT
  Sex: Male
  Weight: 104.42 kg

DRUGS (13)
  1. SIMCOR [Suspect]
     Indication: BLOOD GLUCOSE INCREASED
     Dosage: 1000/20MG X2 PILLS EVERY NIGHT
     Dates: start: 20120302
  2. RANITIDINE [Concomitant]
     Indication: PRODUCT USED FOR UNKNOWN INDICATION
  3. SYNTHROID [Concomitant]
     Indication: PRODUCT USED FOR UNKNOWN INDICATION
  4. METFORMIN HCL [Concomitant]
     Indication: PRODUCT USED FOR UNKNOWN INDICATION
  5. NEXIUM [Concomitant]
     Indication: PRODUCT USED FOR UNKNOWN INDICATION
  6. LASIX [Concomitant]
     Indication: PRODUCT USED FOR UNKNOWN INDICATION
  7. MULTI-VITAMINS [Concomitant]
     Indication: PRODUCT USED FOR UNKNOWN INDICATION
  8. ASPIRIN [Concomitant]
     Indication: PRODUCT USED FOR UNKNOWN INDICATION
  9. NORVASC [Concomitant]
     Indication: PRODUCT USED FOR UNKNOWN INDICATION
  10. LUMIGAN [Concomitant]
     Indication: PRODUCT USED FOR UNKNOWN INDICATION
  11. TIMOLOL MALEATE [Concomitant]
     Indication: PRODUCT USED FOR UNKNOWN INDICATION
     Dosage: EYE DROPS
  12. FLOMAX [Concomitant]
     Indication: PRODUCT USED FOR UNKNOWN INDICATION
  13. SIMCOR [Suspect]
     Indication: BLOOD TRIGLYCERIDES INCREASED
     Dosage: 1000/20MG X2 PILLS EVERY NIGHT
     Dates: start: 20100101, end: 20120218

REACTIONS (8)
  - UPPER-AIRWAY COUGH SYNDROME [None]
  - DRY MOUTH [None]
  - COUGH [None]
  - FLUSHING [None]
  - BLOOD GLUCOSE INCREASED [None]
  - ERYTHEMA [None]
  - OFF LABEL USE [None]
  - OROPHARYNGEAL PAIN [None]
